FAERS Safety Report 5439088-8 (Version None)
Quarter: 2007Q3

REPORT INFORMATION
  Report Type: 
  Country: None (occurrence: None)
  Receive Date: 20070831
  Receipt Date: 20070821
  Transmission Date: 20080115
  Serious: Yes (Other)
  Sender: FDA-Public Use
  Company Number: GB-SANOFI-SYNTHELABO-A01200709485

PATIENT
  Age: 38 Year
  Sex: Male

DRUGS (8)
  1. METHYLPREDNISOLONE 16MG TAB [Suspect]
     Indication: PERIPHERAL ISCHAEMIA
     Dosage: UNK
     Route: 065
  2. LOSARTAN POTASSIUM [Suspect]
     Indication: SYSTEMIC SCLEROSIS
     Dosage: UNK
     Route: 065
  3. ILOPROST [Suspect]
     Indication: SYSTEMIC SCLEROSIS
     Dosage: UNK
     Route: 065
  4. NIFEDIPINE [Suspect]
     Indication: SYSTEMIC SCLEROSIS
     Dosage: UNK
     Route: 065
  5. LANSOPRAZOLE [Suspect]
     Indication: SYSTEMIC SCLEROSIS
     Dosage: UNK
     Route: 065
  6. FLUOXETINE [Suspect]
     Indication: SYSTEMIC SCLEROSIS
     Dosage: UNK
     Route: 065
  7. CLOPIDOGREL BISULFATE [Suspect]
     Indication: SYSTEMIC SCLEROSIS
     Dosage: UNK
     Route: 048
  8. CYCLOPHOSPHAMIDE [Suspect]
     Indication: PERIPHERAL ISCHAEMIA
     Dosage: UNK
     Route: 065

REACTIONS (3)
  - CONDITION AGGRAVATED [None]
  - DRUG INEFFECTIVE [None]
  - SYSTEMIC SCLEROSIS [None]
